FAERS Safety Report 8902147 (Version 2)
Quarter: 2013Q4

REPORT INFORMATION
  Report Type: Spontaneous
  Country: US (occurrence: US)
  Receive Date: 20121112
  Receipt Date: 20131031
  Transmission Date: 20140711
  Serious: Yes (Death, Life-Threatening, Other)
  Sender: FDA-Public Use
  Company Number: US-ROCHE-1154380

PATIENT
  Age: 52 Year
  Sex: Male
  Weight: 90.35 kg

DRUGS (7)
  1. ACTEMRA [Suspect]
     Indication: RHEUMATOID ARTHRITIS
     Route: 042
     Dates: start: 20111205
  2. ACTEMRA [Suspect]
     Route: 042
     Dates: start: 20120112
  3. ACTEMRA [Suspect]
     Route: 042
     Dates: start: 20120319
  4. ACTEMRA [Suspect]
     Route: 042
     Dates: start: 20120501
  5. ACTEMRA [Suspect]
     Route: 042
     Dates: start: 20120529
  6. ACTEMRA [Suspect]
     Route: 042
     Dates: start: 20120706
  7. ACTEMRA [Suspect]
     Route: 042
     Dates: start: 20120807, end: 20120807

REACTIONS (12)
  - Death [Fatal]
  - Ventricular fibrillation [Unknown]
  - Cardiac arrest [Unknown]
  - Atrial fibrillation [Unknown]
  - Troponin increased [Unknown]
  - Syncope [Unknown]
  - Nausea [Unknown]
  - Vomiting [Unknown]
  - Abdominal discomfort [Unknown]
  - Acute myocardial infarction [Unknown]
  - Circulatory collapse [Unknown]
  - Cardiogenic shock [Unknown]
